FAERS Safety Report 7262962-7 (Version None)
Quarter: 2011Q1

REPORT INFORMATION
  Report Type: 
  Country: None (occurrence: None)
  Receive Date: 20110130
  Receipt Date: 20101210
  Transmission Date: 20110831
  Serious: No
  Sender: FDA-Public Use
  Company Number: US-ABBOTT-10P-163-0676085-00

PATIENT
  Sex: Female
  Weight: 79.45 kg

DRUGS (5)
  1. METHOTREXATE [Concomitant]
     Indication: PRODUCT USED FOR UNKNOWN INDICATION
     Dosage: EVERY SUNDAY FOR A YEAR
  2. FOLIC ACID [Concomitant]
     Indication: PRODUCT USED FOR UNKNOWN INDICATION
  3. MULTI-VITAMIN [Concomitant]
     Indication: PRODUCT USED FOR UNKNOWN INDICATION
  4. PREDNESONE [Concomitant]
     Indication: PRODUCT USED FOR UNKNOWN INDICATION
  5. HUMIRA [Suspect]
     Indication: RHEUMATOID ARTHRITIS
     Dates: start: 20100501, end: 20100901

REACTIONS (5)
  - DRY SKIN [None]
  - EYE SWELLING [None]
  - EYELID OEDEMA [None]
  - RASH [None]
  - SWELLING FACE [None]
